FAERS Safety Report 22307871 (Version 1)
Quarter: 2023Q2

REPORT INFORMATION
  Report Type: Spontaneous
  Country: US (occurrence: US)
  Receive Date: 20230511
  Receipt Date: 20230511
  Transmission Date: 20230721
  Serious: No
  Sender: FDA-Public Use
  Company Number: US-Amarin Pharma, Inc.-2023AMR000036

PATIENT

DRUGS (3)
  1. VASCEPA [Suspect]
     Active Substance: ICOSAPENT ETHYL
     Indication: Blood triglycerides increased
     Dosage: TAKES 2 CAPSULES IN AM AND 2 CAPSULES IN PM
     Route: 048
     Dates: start: 2011
  2. ROSUVASTATIN [Concomitant]
     Active Substance: ROSUVASTATIN
     Indication: Blood cholesterol abnormal
  3. ASPIRIN [Concomitant]
     Active Substance: ASPIRIN
     Indication: Mitral valve prolapse

REACTIONS (7)
  - Poor quality product administered [Unknown]
  - Product dose omission in error [Unknown]
  - Wrong technique in product usage process [Unknown]
  - Product colour issue [Unknown]
  - Product leakage [Unknown]
  - Product physical issue [Unknown]
  - Product odour abnormal [Unknown]
